FAERS Safety Report 16557115 (Version 1)
Quarter: 2019Q3

REPORT INFORMATION
  Report Type: Spontaneous
  Country: IN (occurrence: IN)
  Receive Date: 20190711
  Receipt Date: 20190711
  Transmission Date: 20191004
  Serious: Yes (Other)
  Sender: FDA-Public Use
  Company Number: IN-LUPIN PHARMACEUTICALS INC.-2019-04261

PATIENT
  Age: 18 Year
  Sex: Male

DRUGS (3)
  1. FLUVOXAMINE [Suspect]
     Active Substance: FLUVOXAMINE
     Indication: OBSESSIVE-COMPULSIVE SYMPTOM
     Dosage: UNK
     Route: 065
  2. THYROXINE [Concomitant]
     Active Substance: LEVOTHYROXINE
     Indication: HYPOTHYROIDISM
     Dosage: UNK
     Route: 048
  3. SERTRALINE [Suspect]
     Active Substance: SERTRALINE HYDROCHLORIDE
     Indication: OBSESSIVE-COMPULSIVE SYMPTOM
     Dosage: UNK
     Route: 065

REACTIONS (9)
  - Obsessive-compulsive symptom [Unknown]
  - Condition aggravated [Unknown]
  - Anger [Unknown]
  - Euphoric mood [Unknown]
  - Insomnia [Unknown]
  - Disinhibition [Unknown]
  - Psychomotor hyperactivity [Unknown]
  - Abnormal behaviour [Unknown]
  - Irritability [Unknown]
